FAERS Safety Report 6194482-5 (Version None)
Quarter: 2009Q2

REPORT INFORMATION
  Report Type: 
  Country: None (occurrence: None)
  Receive Date: 20090514
  Receipt Date: 20090507
  Transmission Date: 20091009
  Serious: Yes (Hospitalization)
  Sender: FDA-Public Use
  Company Number: 266300

PATIENT
  Age: 53 Year
  Sex: Female

DRUGS (3)
  1. CYTARABINE [Suspect]
     Indication: HODGKIN'S DISEASE
  2. CALCIUM FOLINATE [Suspect]
     Indication: HODGKIN'S DISEASE
  3. METHOTREXATE [Suspect]
     Indication: HODGKIN'S DISEASE

REACTIONS (2)
  - MULTI-ORGAN FAILURE [None]
  - TOXIC EPIDERMAL NECROLYSIS [None]
